FAERS Safety Report 25582748 (Version 2)
Quarter: 2025Q3

REPORT INFORMATION
  Report Type: Report from Study
  Country: CA (occurrence: CA)
  Receive Date: 20250720
  Receipt Date: 20250926
  Transmission Date: 20251020
  Serious: No
  Sender: ABBVIE
  Company Number: CA-ABBVIE-6372607

PATIENT
  Age: 28 Year
  Sex: Male
  Weight: 104 kg

DRUGS (1)
  1. RINVOQ [Suspect]
     Active Substance: UPADACITINIB
     Indication: Crohn^s disease
     Dosage: LDD 14 JULY 2025
     Route: 048
     Dates: start: 20240623

REACTIONS (3)
  - Diarrhoea [Not Recovered/Not Resolved]
  - Impaired work ability [Unknown]
  - Social problem [Unknown]

NARRATIVE: CASE EVENT DATE: 20250101
